FAERS Safety Report 8948189 (Version 1)
Quarter: 2012Q4

REPORT INFORMATION
  Report Type: Spontaneous
  Country: US (occurrence: None)
  Receive Date: 20121126
  Receipt Date: 20121126
  Transmission Date: 20130627
  Serious: Yes (Other)
  Sender: FDA-Public Use
  Company Number: JPI-P-016877

PATIENT
  Age: 28 Year
  Sex: Female
  Weight: 104.33 kg

DRUGS (8)
  1. XYREM (500 MILLIGRAM/MILLILITERS, SOLUTION) (SODIUM OXYBATE) [Suspect]
     Indication: EXCESSIVE DAYTIME SLEEPINESS
     Route: 048
     Dates: start: 200708
  2. XYREM (500 MILLIGRAM/MILLILITERS, SOLUTION) (SODIUM OXYBATE) [Suspect]
     Indication: NARCOLEPSY
     Route: 048
     Dates: start: 200708
  3. XYREM (500 MILLIGRAM/MILLILITERS, SOLUTION) (SODIUM OXYBATE) [Suspect]
     Indication: EXCESSIVE DAYTIME SLEEPINESS
     Dosage: 7.5 gm (3.75 gm, 2 in 1 D), Oral
     Route: 048
  4. XYREM (500 MILLIGRAM/MILLILITERS, SOLUTION) (SODIUM OXYBATE) [Suspect]
     Indication: NARCOLEPSY
     Dosage: 7.5 gm (3.75 gm, 2 in 1 D), Oral
     Route: 048
  5. DULOXETINE HYDROCHLORIDE [Concomitant]
  6. CETIRIZINE [Concomitant]
  7. FLUTICASONE PROPIONATE [Concomitant]
  8. AZELASTINE HYDROCHLORIDE [Concomitant]

REACTIONS (3)
  - Pregnancy [None]
  - Exposure during pregnancy [None]
  - Pre-eclampsia [None]
